FAERS Safety Report 15754763 (Version 1)
Quarter: 2018Q4

REPORT INFORMATION
  Report Type: Spontaneous
  Country: US (occurrence: US)
  Receive Date: 20181224
  Receipt Date: 20181224
  Transmission Date: 20190205
  Serious: Yes (Other)
  Sender: FDA-Public Use
  Company Number: US-BRISTOL-MYERS SQUIBB COMPANY-BMS-2018-119194

PATIENT
  Sex: Female

DRUGS (1)
  1. OPDIVO [Suspect]
     Active Substance: NIVOLUMAB
     Indication: LUNG NEOPLASM MALIGNANT
     Dosage: UNK
     Route: 065
     Dates: start: 2015

REACTIONS (5)
  - Muscular weakness [Unknown]
  - Hypoaesthesia oral [Unknown]
  - Dysarthria [Unknown]
  - Metastases to central nervous system [Unknown]
  - Facial paralysis [Unknown]

NARRATIVE: CASE EVENT DATE: 201803
